FAERS Safety Report 7043242-1 (Version None)
Quarter: 2010Q4

REPORT INFORMATION
  Report Type: 
  Country: None (occurrence: None)
  Receive Date: 20101013
  Receipt Date: 20100601
  Transmission Date: 20110411
  Serious: No
  Sender: FDA-Public Use
  Company Number: US-ASTRAZENECA-2010SE25135

PATIENT
  Age: 60 Year
  Sex: Female
  Weight: 154.2 kg

DRUGS (4)
  1. SYMBICORT [Suspect]
     Dosage: TWO TIMES A DAY
     Route: 055
  2. SYNTHROID [Concomitant]
  3. VERAPAMIL [Concomitant]
  4. LISINOPRIL [Concomitant]

REACTIONS (6)
  - JOINT SWELLING [None]
  - OEDEMA PERIPHERAL [None]
  - PRURITUS [None]
  - PYREXIA [None]
  - RESPIRATORY DISTRESS [None]
  - VISION BLURRED [None]
